FAERS Safety Report 9819431 (Version 1)
Quarter: 2014Q1

REPORT INFORMATION
  Report Type: Spontaneous
  Country: FR (occurrence: FR)
  Receive Date: 20140115
  Receipt Date: 20140115
  Transmission Date: 20141002
  Serious: Yes (Other)
  Sender: FDA-Public Use
  Company Number: FR-BRISTOL-MYERS SQUIBB COMPANY-19998772

PATIENT
  Age: 64 Year
  Sex: Male

DRUGS (3)
  1. REYATAZ CAPS 300 MG [Suspect]
     Route: 048
     Dates: start: 200902, end: 20121219
  2. NORVIR [Concomitant]
     Dates: start: 200902
  3. TRUVADA [Concomitant]
     Dates: start: 200902

REACTIONS (2)
  - Renal colic [Recovered/Resolved]
  - Crystalluria [Recovered/Resolved]
